FAERS Safety Report 23753567 (Version 1)
Quarter: 2024Q2

REPORT INFORMATION
  Report Type: Other
  Country: CA (occurrence: CA)
  Receive Date: 20240417
  Receipt Date: 20240417
  Transmission Date: 20240717
  Serious: Yes (Other)
  Sender: FDA-Public Use
  Company Number: CA-LANTHEUS-LMI-2024-00444

PATIENT

DRUGS (2)
  1. CARDIOLITE [Suspect]
     Active Substance: TECHNETIUM TC-99M SESTAMIBI
     Indication: Product used for unknown indication
     Dosage: UNK; TRANSPLACENTAL INJECTION
  2. TECHNETIUM TC-99M PENTETATE [Suspect]
     Active Substance: TECHNETIUM TC-99M PENTETATE
     Indication: Product used for unknown indication
     Dosage: UNK; TRANSPLACENTAL INJECTION

REACTIONS (3)
  - Foetal heart rate deceleration abnormality [Unknown]
  - Placental insufficiency [Unknown]
  - Premature baby [Unknown]
